FAERS Safety Report 5131660-8 (Version None)
Quarter: 2006Q4

REPORT INFORMATION
  Report Type: 
  Country: None (occurrence: None)
  Receive Date: 20061020
  Receipt Date: 20061013
  Transmission Date: 20070319
  Serious: Yes (Hospitalization)
  Sender: FDA-Public Use
  Company Number: US-BRISTOL-MYERS SQUIBB COMPANY-13541594

PATIENT
  Age: 40 Year
  Sex: Female

DRUGS (3)
  1. ORENCIA [Suspect]
     Indication: JUVENILE ARTHRITIS
  2. NAPROXEN [Concomitant]
  3. PREDNISONE TAB [Concomitant]

REACTIONS (1)
  - CROHN'S DISEASE [None]
